FAERS Safety Report 6815379-0 (Version None)
Quarter: 2010Q3

REPORT INFORMATION
  Report Type: 
  Country: None (occurrence: None)
  Receive Date: 20100702
  Receipt Date: 20100622
  Transmission Date: 20110219
  Serious: Yes (Death)
  Sender: FDA-Public Use
  Company Number: GXKR2010JP06981

PATIENT
  Age: 80 Year
  Sex: Female
  Weight: 39.7 kg

DRUGS (4)
  1. DEXAMETHASONE (NGX) [Suspect]
     Indication: ASTHMA
     Dosage: 8 MG, QD
     Route: 042
  2. DEXAMETHASONE (NGX) [Suspect]
     Dosage: 4 MG, QD
     Route: 042
  3. PREDNISOLONE [Suspect]
     Indication: ASTHMA
     Dosage: 7.5 MG, UNK
     Route: 048
  4. AMINOPHYLLINE [Concomitant]
     Dosage: 125 MG, QD
     Route: 065

REACTIONS (10)
  - AZOTAEMIA [None]
  - CYSTITIS HAEMORRHAGIC [None]
  - CYTOMEGALOVIRUS INFECTION [None]
  - DYSPNOEA [None]
  - HISTIOCYTOSIS HAEMATOPHAGIC [None]
  - MELAENA [None]
  - OLIGURIA [None]
  - RALES [None]
  - RESPIRATORY FAILURE [None]
  - SOMNOLENCE [None]
